FAERS Safety Report 23989005 (Version 1)
Quarter: 2024Q2

REPORT INFORMATION
  Report Type: Spontaneous
  Country: US (occurrence: US)
  Receive Date: 20240619
  Receipt Date: 20240619
  Transmission Date: 20240716
  Serious: Yes (Hospitalization)
  Sender: FDA-Public Use
  Company Number: US-STERISCIENCE B.V.-2024-ST-000830

PATIENT
  Age: 42 Year
  Sex: Male

DRUGS (7)
  1. SODIUM BICARBONATE [Suspect]
     Active Substance: SODIUM BICARBONATE
     Indication: Intentional overdose
     Dosage: UNK
     Route: 065
  2. SODIUM BICARBONATE [Suspect]
     Active Substance: SODIUM BICARBONATE
     Indication: Toxicity to various agents
  3. ACTIVATED CHARCOAL [Suspect]
     Active Substance: ACTIVATED CHARCOAL
     Indication: Intentional overdose
     Dosage: UNK
     Route: 065
  4. ACTIVATED CHARCOAL [Suspect]
     Active Substance: ACTIVATED CHARCOAL
     Indication: Toxicity to various agents
  5. ASPIRIN [Concomitant]
     Active Substance: ASPIRIN
     Indication: Product used for unknown indication
     Dosage: 488 GRAM
     Route: 048
  6. SUCCINYLCHOLINE CHLORIDE [Concomitant]
     Active Substance: SUCCINYLCHOLINE CHLORIDE
     Indication: Endotracheal intubation
     Dosage: UNK
     Route: 065
  7. KETAMINE [Concomitant]
     Active Substance: KETAMINE
     Indication: Endotracheal intubation
     Dosage: UNK
     Route: 065

REACTIONS (2)
  - Drug ineffective [Unknown]
  - Disease progression [Unknown]
